FAERS Safety Report 5612779-1 (Version None)
Quarter: 2008Q1

REPORT INFORMATION
  Report Type: 
  Country: None (occurrence: None)
  Receive Date: 20080204
  Receipt Date: 20080124
  Transmission Date: 20080703
  Serious: Yes (Life-Threatening, Hospitalization)
  Sender: FDA-Public Use
  Company Number: FR-WYE-H02272108

PATIENT
  Sex: Male

DRUGS (3)
  1. CORDARONE [Suspect]
     Dosage: 200 MG FREQUENCY UNSPECIFIED
     Route: 048
     Dates: end: 20071217
  2. VORICONAZOLE [Interacting]
     Dosage: 200 MG FREQUENCY UNSPECIFIED
     Route: 042
     Dates: start: 20071105, end: 20071115
  3. VORICONAZOLE [Interacting]
     Dosage: 200 MG FREQUENCY UNSPECIFIED
     Route: 042
     Dates: start: 20071203, end: 20071210

REACTIONS (3)
  - DRUG INTERACTION [None]
  - ELECTROCARDIOGRAM QT PROLONGED [None]
  - TORSADE DE POINTES [None]
